FAERS Safety Report 9555629 (Version 2)
Quarter: 2013Q4

REPORT INFORMATION
  Report Type: Spontaneous
  Country: FR (occurrence: FR)
  Receive Date: 20130926
  Receipt Date: 20131025
  Transmission Date: 20140711
  Serious: Yes (Other)
  Sender: FDA-Public Use
  Company Number: PHHY2013FR105590

PATIENT
  Age: 34 Year
  Sex: Male

DRUGS (3)
  1. CLOZAPINE [Suspect]
     Indication: SCHIZOPHRENIA, PARANOID TYPE
  2. QUETIAPINE [Suspect]
     Dosage: 600 MG, DAY
  3. CLORAZEPATE [Concomitant]
     Dosage: 40 MG, DAY

REACTIONS (5)
  - Colitis ischaemic [Unknown]
  - Inflammatory bowel disease [Recovering/Resolving]
  - Large intestinal haemorrhage [Unknown]
  - Gastrointestinal necrosis [Unknown]
  - Intestinal ulcer [Recovering/Resolving]
